FAERS Safety Report 18469248 (Version 2)
Quarter: 2020Q4

REPORT INFORMATION
  Report Type: Report from Study
  Country: SI (occurrence: SI)
  Receive Date: 20201105
  Receipt Date: 20201119
  Transmission Date: 20210114
  Serious: Yes (Hospitalization, Other)
  Sender: FDA-Public Use
  Company Number: SI-BAYER-2020-126522

PATIENT
  Age: 72 Year
  Sex: Male

DRUGS (3)
  1. STIVARGA [Suspect]
     Active Substance: REGORAFENIB
     Indication: HEPATOCELLULAR CARCINOMA
     Dosage: DAILY DOSE 160 MG
     Dates: start: 20200619, end: 20200717
  2. STIVARGA [Suspect]
     Active Substance: REGORAFENIB
     Indication: HEPATOCELLULAR CARCINOMA
     Dosage: DAILY DOSE 80 MG
     Dates: start: 20200825, end: 20201018
  3. STIVARGA [Suspect]
     Active Substance: REGORAFENIB
     Indication: HEPATOCELLULAR CARCINOMA
     Dosage: DAILY DOSE 160 MG
     Dates: start: 20200805, end: 20200820

REACTIONS (13)
  - Hypertension [Not Recovered/Not Resolved]
  - Inflammation [None]
  - Nocturia [Not Recovered/Not Resolved]
  - Fatigue [Not Recovered/Not Resolved]
  - Inflammation [Not Recovered/Not Resolved]
  - Muscular weakness [Not Recovered/Not Resolved]
  - Stomatitis [Not Recovered/Not Resolved]
  - Insomnia [Not Recovered/Not Resolved]
  - Pyrexia [Recovered/Resolved]
  - Fall [Recovered/Resolved]
  - Vertigo [Not Recovered/Not Resolved]
  - Hypotension [Recovered/Resolved]
  - Pyrexia [Recovered/Resolved]

NARRATIVE: CASE EVENT DATE: 20200620
